FAERS Safety Report 25016094 (Version 1)
Quarter: 2025Q1

REPORT INFORMATION
  Report Type: Spontaneous
  Country: DK (occurrence: DK)
  Receive Date: 20250227
  Receipt Date: 20250227
  Transmission Date: 20250408
  Serious: Yes (Other)
  Sender: ROCHE
  Company Number: None

PATIENT
  Age: 78 Year
  Sex: Female
  Weight: 58 kg

DRUGS (8)
  1. VABYSMO [Suspect]
     Active Substance: FARICIMAB-SVOA
     Indication: Neovascular age-related macular degeneration
     Route: 050
     Dates: start: 20231129
  2. VABYSMO [Suspect]
     Active Substance: FARICIMAB-SVOA
     Route: 050
     Dates: start: 20240124
  3. VABYSMO [Suspect]
     Active Substance: FARICIMAB-SVOA
     Route: 050
     Dates: start: 20240318
  4. VABYSMO [Suspect]
     Active Substance: FARICIMAB-SVOA
     Route: 050
     Dates: start: 20240429
  5. VABYSMO [Suspect]
     Active Substance: FARICIMAB-SVOA
     Route: 050
     Dates: start: 20240610
  6. CLOPIDOGREL [Concomitant]
     Active Substance: CLOPIDOGREL BISULFATE
     Indication: Thrombosis prophylaxis
     Dates: start: 20231023
  7. LOSARTAN POTASSIUM [Concomitant]
     Active Substance: LOSARTAN POTASSIUM
     Indication: Cardiac failure
     Dates: start: 20220516
  8. ATORVASTATIN [Concomitant]
     Active Substance: ATORVASTATIN
     Indication: Hypercholesterolaemia
     Dosage: STRENGTH: 40 MG
     Dates: start: 20240122

REACTIONS (4)
  - Iridocyclitis [Recovering/Resolving]
  - Lacrimation increased [Unknown]
  - Serous retinal detachment [Unknown]
  - Eye pain [Unknown]

NARRATIVE: CASE EVENT DATE: 20240101
